FAERS Safety Report 14001106 (Version 1)
Quarter: 2017Q3

REPORT INFORMATION
  Report Type: Spontaneous
  Country: US (occurrence: US)
  Receive Date: 20170922
  Receipt Date: 20170922
  Transmission Date: 20171128
  Serious: Yes (Hospitalization)
  Sender: FDA-Public Use
  Company Number: US-INTERPRAG-PM-OCA2017-00940

PATIENT

DRUGS (22)
  1. AMOXICILLIN. [Concomitant]
     Active Substance: AMOXICILLIN
  2. CALCIUM [Concomitant]
     Active Substance: CALCIUM
  3. LORAZEPAM. [Concomitant]
     Active Substance: LORAZEPAM
  4. PULMICORT TURBUHALER [Concomitant]
     Active Substance: BUDESONIDE
  5. SIMVASTATIN. [Concomitant]
     Active Substance: SIMVASTATIN
  6. B COMPLEX                          /00322001/ [Concomitant]
     Active Substance: CALCIUM PANTOTHENATE\CYANOCOBALAMIN\NIACINAMIDE\PYRIDOXINE HYDROCHLORIDE\RIBOFLAVIN\THIAMINE HYDROCHLORIDE
  7. LEVOTHYROXIN [Concomitant]
     Active Substance: LEVOTHYROXINE
  8. TRAMADOLE [Concomitant]
     Active Substance: TRAMADOL HYDROCHLORIDE
  9. DOXYCYCLINE HYCLATE. [Concomitant]
     Active Substance: DOXYCYCLINE HYCLATE
  10. PROAIR HFA [Concomitant]
     Active Substance: ALBUTEROL SULFATE
  11. IBUPROFEN. [Concomitant]
     Active Substance: IBUPROFEN
  12. SPIRIVA [Concomitant]
     Active Substance: TIOTROPIUM BROMIDE MONOHYDRATE
  13. OMEPRAZOLE. [Concomitant]
     Active Substance: OMEPRAZOLE
  14. LEVOFLOXACIN. [Concomitant]
     Active Substance: LEVOFLOXACIN
  15. KETOTIF [Concomitant]
  16. ALENDRONATE [Concomitant]
     Active Substance: ALENDRONATE SODIUM
  17. OCALIVA [Suspect]
     Active Substance: OBETICHOLIC ACID
     Indication: BILIARY CIRRHOSIS PRIMARY
     Dosage: 5 MG, QD
     Route: 048
     Dates: start: 201707
  18. URSODIOL. [Concomitant]
     Active Substance: URSODIOL
  19. PREDNISONE. [Concomitant]
     Active Substance: PREDNISONE
  20. METOPROL XL [Concomitant]
  21. L-CARNITINE                        /00878601/ [Concomitant]
     Active Substance: LEVOCARNITINE
  22. LISINOPRIL. [Concomitant]
     Active Substance: LISINOPRIL

REACTIONS (6)
  - Blood pressure decreased [Unknown]
  - Dehydration [Unknown]
  - Infection [Unknown]
  - Drug dose omission [Unknown]
  - Pneumonia aspiration [Unknown]
  - White blood cell count increased [Unknown]

NARRATIVE: CASE EVENT DATE: 20170818
